FAERS Safety Report 8672013 (Version 2)
Quarter: 2013Q4

REPORT INFORMATION
  Report Type: Spontaneous
  Country: US (occurrence: US)
  Receive Date: 20120719
  Receipt Date: 20131101
  Transmission Date: 20140711
  Serious: No
  Sender: FDA-Public Use
  Company Number: US-009507513-1207USA001293

PATIENT
  Age: 84 Year
  Sex: Male

DRUGS (3)
  1. ZIOPTAN [Suspect]
     Indication: GLAUCOMA
     Dosage: ONE DROP BOTH EYES, QD
     Route: 047
  2. ALPHAGAN [Concomitant]
  3. PILOCARPINE HYDROCHLORIDE [Concomitant]

REACTIONS (1)
  - Pruritus generalised [Not Recovered/Not Resolved]
